FAERS Safety Report 8401656-9 (Version None)
Quarter: 2012Q2

REPORT INFORMATION
  Report Type: 
  Country: None (occurrence: None)
  Receive Date: 20120601
  Receipt Date: 20120523
  Transmission Date: 20120825
  Serious: Yes (Other)
  Sender: FDA-Public Use
  Company Number: JP-VERTEX PHARMACEUTICALS INC.-AE-2012-004353

PATIENT
  Age: 46 Year
  Sex: Female

DRUGS (9)
  1. TELAVIC (TELAPREVIR) [Suspect]
     Route: 048
     Dates: start: 20120327, end: 20120409
  2. PEGINTERFERON [Concomitant]
     Route: 051
     Dates: start: 20120306
  3. REBETOL [Concomitant]
     Route: 048
     Dates: start: 20120403
  4. LOXONIN [Concomitant]
     Route: 048
  5. CELESTAMINE TAB [Concomitant]
     Route: 048
     Dates: start: 20120312
  6. REBETOL [Concomitant]
     Indication: HEPATITIS C
     Route: 048
     Dates: start: 20120306, end: 20120402
  7. TELAVIC (TELAPREVIR) [Suspect]
     Indication: HEPATITIS C
     Route: 048
     Dates: start: 20120306, end: 20120321
  8. MOTILIUM [Concomitant]
     Route: 048
     Dates: start: 20120313
  9. ANTEBATE [Concomitant]
     Route: 061
     Dates: start: 20120309

REACTIONS (2)
  - TOXIC SKIN ERUPTION [None]
  - ANAEMIA [None]
